FAERS Safety Report 5352490-8 (Version None)
Quarter: 2007Q2

REPORT INFORMATION
  Report Type: 
  Country: None (occurrence: None)
  Receive Date: 20070611
  Receipt Date: 20070605
  Transmission Date: 20071010
  Serious: Yes (Other)
  Sender: FDA-Public Use
  Company Number: D0053481A

PATIENT
  Age: 45 Year
  Sex: Male
  Weight: 70 kg

DRUGS (6)
  1. VOLMAC [Suspect]
     Dosage: 160MG SINGLE DOSE
     Route: 048
  2. ASPIRIN [Suspect]
     Dosage: 5000MG SINGLE DOSE
     Route: 048
  3. DIAZEPAM [Suspect]
     Dosage: 100MG SINGLE DOSE
     Route: 048
  4. DORMICUM [Suspect]
     Dosage: 75MG SINGLE DOSE
     Route: 048
  5. PROPRANOLOL [Suspect]
     Dosage: 400MG SINGLE DOSE
     Route: 048
  6. XIMOVAN [Suspect]
     Dosage: 75MG SINGLE DOSE
     Route: 048

REACTIONS (4)
  - HYPOTENSION [None]
  - INTENTIONAL OVERDOSE [None]
  - SUICIDE ATTEMPT [None]
  - TACHYCARDIA [None]
